FAERS Safety Report 6823096-6 (Version None)
Quarter: 2010Q3

REPORT INFORMATION
  Report Type: 
  Country: None (occurrence: None)
  Receive Date: 20100708
  Receipt Date: 20100628
  Transmission Date: 20110219
  Serious: Yes (Hospitalization)
  Sender: FDA-Public Use
  Company Number: US-MERCK-1006USA04624

PATIENT
  Age: 63 Year
  Sex: Male

DRUGS (4)
  1. HYDRODIURIL [Suspect]
     Route: 048
  2. METOPROLOL [Concomitant]
     Route: 065
  3. LISINOPRIL [Concomitant]
     Route: 065
  4. VALPROIC ACID [Concomitant]
     Route: 065

REACTIONS (2)
  - ELECTROCARDIOGRAM ABNORMAL [None]
  - HYPONATRAEMIA [None]
